FAERS Safety Report 23903149 (Version 3)
Quarter: 2024Q4

REPORT INFORMATION
  Report Type: Spontaneous
  Country: US (occurrence: US)
  Receive Date: 20240527
  Receipt Date: 20241128
  Transmission Date: 20250115
  Serious: Yes (Other)
  Sender: CSL BEHRING
  Company Number: US-BEH-2024172060

PATIENT
  Age: 71 Year
  Sex: Female

DRUGS (11)
  1. HIZENTRA [Suspect]
     Active Substance: HUMAN IMMUNOGLOBULIN G
     Indication: Humoral immune defect
     Dosage: 10 G, QOW
     Route: 058
     Dates: start: 2020
  2. HIZENTRA [Suspect]
     Active Substance: HUMAN IMMUNOGLOBULIN G
     Dosage: UNK
     Route: 058
     Dates: start: 202404
  3. HIZENTRA [Suspect]
     Active Substance: HUMAN IMMUNOGLOBULIN G
     Dosage: 10 G, QOW
     Route: 058
  4. HIZENTRA [Suspect]
     Active Substance: HUMAN IMMUNOGLOBULIN G
     Dosage: 10 G, QOW
     Route: 058
  5. HIZENTRA [Suspect]
     Active Substance: HUMAN IMMUNOGLOBULIN G
     Dosage: 10 G, EVERY TWO WEEKS
     Route: 058
  6. AMLODIPINE [Concomitant]
     Active Substance: AMLODIPINE BESYLATE
     Dosage: 5 MG
  7. TAMOXIFEN CITRATE [Concomitant]
     Active Substance: TAMOXIFEN CITRATE
  8. METOPROLOL [Concomitant]
     Active Substance: METOPROLOL
     Dosage: 25 MG
  9. CALCIUM\VITAMIN D [Concomitant]
     Active Substance: CALCIUM\VITAMIN D
  10. VITAMIN B12 [Concomitant]
     Active Substance: CYANOCOBALAMIN
  11. SIMVASTATIN [Concomitant]
     Active Substance: SIMVASTATIN

REACTIONS (19)
  - Mastectomy [Unknown]
  - Infusion site haemorrhage [Not Recovered/Not Resolved]
  - Cough [Not Recovered/Not Resolved]
  - Patient dissatisfaction with treatment [Unknown]
  - Infusion site haemorrhage [Unknown]
  - Infusion site pain [Unknown]
  - Infusion site erythema [Unknown]
  - Hypersensitivity [Unknown]
  - Infusion site discharge [Unknown]
  - Infusion site haemorrhage [Unknown]
  - Injection site pain [Unknown]
  - Infusion site erythema [Unknown]
  - Infusion site swelling [Unknown]
  - Infusion site bruising [Unknown]
  - COVID-19 [Unknown]
  - Illness [Unknown]
  - Blood glucose increased [Unknown]
  - Injection site erythema [Unknown]
  - Injection site pain [Unknown]

NARRATIVE: CASE EVENT DATE: 20240401
